APPROVED DRUG PRODUCT: BUMETANIDE
Active Ingredient: BUMETANIDE
Strength: 1MG
Dosage Form/Route: TABLET;ORAL
Application: A209724 | Product #002 | TE Code: AB
Applicant: AMNEAL PHARMACEUTICALS CO GMBH
Approved: Oct 18, 2017 | RLD: No | RS: No | Type: RX